FAERS Safety Report 21172251 (Version 1)
Quarter: 2022Q3

REPORT INFORMATION
  Report Type: Spontaneous
  Country: US (occurrence: None)
  Receive Date: 20220803
  Receipt Date: 20220803
  Transmission Date: 20221027
  Serious: No
  Sender: FDA-Public Use
  Company Number: None

PATIENT
  Sex: Female
  Weight: 60.19 kg

DRUGS (21)
  1. CAPECITABINE [Suspect]
     Active Substance: CAPECITABINE
     Indication: Breast cancer
     Dosage: OTHER FREQUENCY : 2X/D 14D ON 7D OFF;?
     Route: 048
     Dates: start: 20220506, end: 20220803
  2. CAPECITABINE [Suspect]
     Active Substance: CAPECITABINE
     Indication: Bone cancer
  3. MAGNESIUM [Concomitant]
     Active Substance: MAGNESIUM
  4. CALCIUM CITRATE [Concomitant]
     Active Substance: CALCIUM CITRATE
  5. MINERALS\VITAMINS [Concomitant]
     Active Substance: MINERALS\VITAMINS
  6. LACTOBACILLUS ACIDOPHILUS [Concomitant]
     Active Substance: LACTOBACILLUS ACIDOPHILUS
  7. ONDANSETRON [Concomitant]
     Active Substance: ONDANSETRON
  8. DEXAMETHASONE [Concomitant]
     Active Substance: DEXAMETHASONE
  9. BENZONATATE [Concomitant]
     Active Substance: BENZONATATE
  10. MEDROL [Concomitant]
     Active Substance: METHYLPREDNISOLONE
  11. AMLODIPINE BESYLATE [Concomitant]
     Active Substance: AMLODIPINE BESYLATE
  12. LIDOCAINE\PRILOCAINE [Concomitant]
     Active Substance: LIDOCAINE\PRILOCAINE
  13. MINERALS\VITAMINS [Concomitant]
     Active Substance: MINERALS\VITAMINS
  14. ASCORBIC ACID\IRON [Concomitant]
     Active Substance: ASCORBIC ACID\IRON
  15. MAGNESIUM OXIDE [Concomitant]
     Active Substance: MAGNESIUM OXIDE
  16. SACCHAROMYCES CEREVISIAE [Concomitant]
     Active Substance: SACCHAROMYCES CEREVISIAE
  17. KP Vitamin B-12 [Concomitant]
  18. Calcium-Vit D3-Vit K [Concomitant]
  19. TUMS [Concomitant]
     Active Substance: CALCIUM CARBONATE
  20. PERJETA [Concomitant]
     Active Substance: PERTUZUMAB
  21. TUKYSA [Concomitant]
     Active Substance: TUCATINIB

REACTIONS (2)
  - Disease progression [None]
  - Therapy cessation [None]
